FAERS Safety Report 10684628 (Version 2)
Quarter: 2015Q1

REPORT INFORMATION
  Report Type: Report from Study
  Country: PL (occurrence: PL)
  Receive Date: 20141231
  Receipt Date: 20150320
  Transmission Date: 20150720
  Serious: Yes (Hospitalization, Disabling)
  Sender: FDA-Public Use
  Company Number: PL-SA-2014SA176360

PATIENT
  Age: 70 Year
  Sex: Male

DRUGS (19)
  1. PANTOPRAZOLE [Concomitant]
     Active Substance: PANTOPRAZOLE SODIUM
     Indication: PEPTIC ULCER
     Route: 048
     Dates: start: 2009, end: 20140803
  2. ATORVASTATIN [Concomitant]
     Active Substance: ATORVASTATIN
     Indication: HYPERLIPIDAEMIA
     Route: 048
     Dates: start: 2013
  3. HEPAREGEN [Concomitant]
     Route: 048
     Dates: start: 2011
  4. POTASSIUM [Concomitant]
     Active Substance: POTASSIUM
     Route: 048
  5. MAGNESIUM [Concomitant]
     Active Substance: MAGNESIUM
     Route: 048
  6. NEBIVOLOL [Concomitant]
     Active Substance: NEBIVOLOL
     Indication: HYPERTENSION
     Route: 048
     Dates: start: 2005
  7. IPRATROPIUM BROMIDE. [Concomitant]
     Active Substance: IPRATROPIUM BROMIDE
     Indication: DYSPNOEA
     Dosage: INHALATION
     Dates: start: 2013
  8. PENTOXIFYLLINE. [Concomitant]
     Active Substance: PENTOXIFYLLINE
     Route: 048
     Dates: start: 2000
  9. FORMOTEROL FUMARATE [Concomitant]
     Active Substance: FORMOTEROL FUMARATE
     Indication: RESPIRATORY DISORDER
     Dosage: INHALATION
     Dates: start: 2013
  10. CIPROFLOXACIN HYDROCHLORIDE. [Concomitant]
     Active Substance: CIPROFLOXACIN HYDROCHLORIDE
     Route: 048
     Dates: start: 20140716, end: 20140722
  11. IPRATROPIUM BROMIDE. [Concomitant]
     Active Substance: IPRATROPIUM BROMIDE
     Indication: RESPIRATORY DISORDER
     Dosage: INHALATION
     Dates: start: 2013
  12. RAMIPRIL. [Concomitant]
     Active Substance: RAMIPRIL
     Indication: HYPERTENSION
     Route: 048
     Dates: start: 2005, end: 20140805
  13. DOCETAXEL. [Suspect]
     Active Substance: DOCETAXEL
     Indication: NON-SMALL CELL LUNG CANCER
     Route: 042
     Dates: start: 20140725, end: 20140725
  14. AMBROXOL HYDROCHLORIDE [Concomitant]
     Active Substance: AMBROXOL HYDROCHLORIDE
     Indication: COUGH
     Dosage: INHALATION
     Dates: start: 20140716, end: 20140722
  15. AMBROXOL HYDROCHLORIDE [Concomitant]
     Active Substance: AMBROXOL HYDROCHLORIDE
     Indication: RESPIRATORY DISORDER
     Dosage: INHALATION
     Dates: start: 20140716, end: 20140722
  16. FORMOTEROL FUMARATE [Concomitant]
     Active Substance: FORMOTEROL FUMARATE
     Indication: DYSPNOEA
     Dosage: INHALATION
     Dates: start: 2013
  17. LACTOBACILLUS CASEI VAR RHAMNOSUS/FRUCTOSE/MALTODEXTRIN [Concomitant]
     Route: 048
     Dates: start: 20140716, end: 20140722
  18. ENOXAPARIN SODIUM. [Concomitant]
     Active Substance: ENOXAPARIN SODIUM
     Route: 058
     Dates: start: 20140708, end: 20140806
  19. ENOXAPARIN SODIUM. [Concomitant]
     Active Substance: ENOXAPARIN SODIUM
     Route: 058
     Dates: start: 20131216, end: 20140707

REACTIONS (2)
  - Oesophageal varices haemorrhage [Recovered/Resolved]
  - Bronchitis [Recovered/Resolved]

NARRATIVE: CASE EVENT DATE: 20140801
